FAERS Safety Report 5465184-5 (Version None)
Quarter: 2007Q3

REPORT INFORMATION
  Report Type: 
  Country: None (occurrence: None)
  Receive Date: 20070924
  Receipt Date: 20070914
  Transmission Date: 20080115
  Serious: Yes (Hospitalization)
  Sender: FDA-Public Use
  Company Number: US-JNJFOC-20070700064

PATIENT
  Sex: Female
  Weight: 54.43 kg

DRUGS (3)
  1. DURAGESIC-100 [Suspect]
     Indication: PAIN
     Dosage: 2X 100 UG/HR PATCHES
     Route: 062
  2. DYAZIDE [Concomitant]
     Indication: SWELLING
     Route: 048
  3. NORCO [Concomitant]
     Indication: BREAKTHROUGH PAIN
     Dosage: 110MG/305MG EVERY FOUR TO SIX HOURS
     Route: 048

REACTIONS (5)
  - INCORRECT DRUG ADMINISTRATION DURATION [None]
  - OEDEMA PERIPHERAL [None]
  - PAIN [None]
  - PAIN IN EXTREMITY [None]
  - WRONG TECHNIQUE IN DRUG USAGE PROCESS [None]
